FAERS Safety Report 8936835 (Version 3)
Quarter: 2013Q2

REPORT INFORMATION
  Report Type: Spontaneous
  Country: US (occurrence: US)
  Receive Date: 20121130
  Receipt Date: 20130629
  Transmission Date: 20140414
  Serious: No
  Sender: FDA-Public Use
  Company Number: US-B.I. PHARMACEUTICALS,INC./RIDGEFIELD-2012-BI-01461BP

PATIENT
  Age: 91 Year
  Sex: Female
  Weight: 66 kg

DRUGS (18)
  1. SPIRIVA [Suspect]
     Indication: ASTHMA
     Dosage: 18 MCG
     Route: 055
     Dates: start: 201208
  2. SPIRIVA [Suspect]
     Indication: DYSPNOEA
  3. THYROID MEDICATION [Concomitant]
     Route: 048
  4. HEART MEDICATION [Concomitant]
     Route: 048
  5. ACID REFLUX MEDICATION [Concomitant]
  6. GLEEVEC [Concomitant]
     Indication: LEUKAEMIA
     Route: 048
  7. PLAVIX [Concomitant]
     Route: 048
  8. LEVOTHYROXINE [Concomitant]
     Route: 048
  9. MYRBETRIQ [Concomitant]
     Route: 048
  10. RESTASIS [Concomitant]
  11. TRAVATAN [Concomitant]
  12. REFRESH LUBE [Concomitant]
  13. DEXILANT [Concomitant]
     Route: 048
  14. TRAVATAN Z [Concomitant]
     Indication: GLAUCOMA
  15. COMBIGAN [Concomitant]
     Indication: GLAUCOMA
  16. RESTASIS [Concomitant]
     Indication: DRY EYE
  17. ARTIFICIAL TEARS (OTC) [Concomitant]
     Indication: DRY EYE
  18. LACRI-LUBE [Concomitant]
     Indication: DRY EYE

REACTIONS (3)
  - Visual impairment [Not Recovered/Not Resolved]
  - Dry eye [Not Recovered/Not Resolved]
  - Eye irritation [Not Recovered/Not Resolved]
